FAERS Safety Report 6854110-X (Version None)
Quarter: 2010Q3

REPORT INFORMATION
  Report Type: 
  Country: None (occurrence: None)
  Receive Date: 20100717
  Receipt Date: 20071228
  Transmission Date: 20110219
  Serious: No
  Sender: FDA-Public Use
  Company Number: US-PFIZER INC-2008000230

PATIENT
  Sex: Female
  Weight: 77.1 kg

DRUGS (5)
  1. CHANTIX [Suspect]
     Indication: SMOKING CESSATION THERAPY
     Dates: start: 20071201
  2. ANTIBIOTICS [Suspect]
     Indication: LYME DISEASE
     Route: 048
     Dates: start: 20071201
  3. ARICEPT [Concomitant]
  4. LORAZEPAM [Concomitant]
     Indication: ANXIETY
  5. ATIVAN [Concomitant]

REACTIONS (7)
  - BRONCHITIS [None]
  - DIZZINESS [None]
  - FEELING HOT [None]
  - HYPERHIDROSIS [None]
  - LYME DISEASE [None]
  - NAUSEA [None]
  - SOMNOLENCE [None]
